FAERS Safety Report 15566337 (Version 1)
Quarter: 2018Q4

REPORT INFORMATION
  Report Type: Spontaneous
  Country: HR (occurrence: HR)
  Receive Date: 20181030
  Receipt Date: 20181030
  Transmission Date: 20190205
  Serious: Yes (Other)
  Sender: FDA-Public Use
  Company Number: HR-PFIZER INC-2018441287

PATIENT
  Age: 16 Year
  Sex: Female
  Weight: 50 kg

DRUGS (4)
  1. XANAX [Suspect]
     Active Substance: ALPRAZOLAM
     Dosage: 2 DF, 1X/DAY (1 DF = 1 TABLET OF UNKNOWN DOSE)
     Route: 048
     Dates: start: 20180905, end: 20180905
  2. MARIJUANA [Suspect]
     Active Substance: CANNABIS SATIVA SUBSP. INDICA TOP
     Dosage: 2 G, 1X/DAY
     Route: 055
     Dates: start: 20180905, end: 20180905
  3. ECSTASY [Suspect]
     Active Substance: MIDOMAFETAMINE
     Dosage: 2 DF, 1X/DAY
     Route: 048
     Dates: start: 20180905, end: 20180905
  4. NORMABEL [Suspect]
     Active Substance: DIAZEPAM
     Dosage: 10 MG, 1X/DAY; 2-3 TABLETS TAKEN (IN TOTAL: 10-15 MG)
     Route: 048
     Dates: start: 20180905, end: 20180905

REACTIONS (1)
  - Drug abuse [Unknown]

NARRATIVE: CASE EVENT DATE: 20180905
